FAERS Safety Report 7721464-1 (Version None)
Quarter: 2011Q3

REPORT INFORMATION
  Report Type: 
  Country: None (occurrence: None)
  Receive Date: 20110831
  Receipt Date: 20110826
  Transmission Date: 20111222
  Serious: Yes (Life-Threatening, Hospitalization)
  Sender: FDA-Public Use
  Company Number: DE-ASTRAZENECA-2011SE51486

PATIENT
  Sex: Female

DRUGS (3)
  1. PROPOFOL [Suspect]
     Indication: ANAESTHESIA
  2. FENTANYL [Interacting]
     Indication: ANAESTHESIA
  3. ENALAPRIL MALEATE [Interacting]

REACTIONS (2)
  - DRUG INTERACTION [None]
  - ANGIOEDEMA [None]
